FAERS Safety Report 8045395-5 (Version None)
Quarter: 2012Q1

REPORT INFORMATION
  Report Type: 
  Country: None (occurrence: None)
  Receive Date: 20120113
  Receipt Date: 20120109
  Transmission Date: 20120608
  Serious: Yes (Hospitalization)
  Sender: FDA-Public Use
  Company Number: DK-PFIZER INC-2011258530

PATIENT
  Age: 62 Year
  Sex: Male
  Weight: 109 kg

DRUGS (15)
  1. RITUXIMAB [Suspect]
     Indication: DIFFUSE LARGE B-CELL LYMPHOMA
     Dosage: 750 MG, UNK
     Route: 042
     Dates: start: 20110811
  2. CYCLOPHOSPHAMIDE [Suspect]
     Indication: DIFFUSE LARGE B-CELL LYMPHOMA
     Dosage: 1800 MG, UNK
     Route: 042
     Dates: start: 20110811
  3. RITUXIMAB [Suspect]
     Dosage: 750 MG, UNK
     Route: 042
     Dates: start: 20110901
  4. PREDNISONE [Suspect]
     Dosage: 100 MG, UNK
     Route: 042
     Dates: start: 20110901
  5. DOXORUBICIN HCL [Suspect]
     Dosage: 120 MG, UNK
     Route: 042
     Dates: start: 20110901
  6. NEUPOGEN [Suspect]
     Dosage: 6 MG, UNK
     Route: 058
     Dates: start: 20110904
  7. SULFAMETHOXAZOLE [Concomitant]
     Indication: PROPHYLAXIS
     Dosage: UNK
     Route: 048
     Dates: start: 20110812
  8. PREDNISONE [Suspect]
     Indication: DIFFUSE LARGE B-CELL LYMPHOMA
     Dosage: 100 MG, UNK
     Route: 048
     Dates: start: 20110811
  9. CYCLOPHOSPHAMIDE [Suspect]
     Dosage: 1800 MG, UNK
     Route: 042
     Dates: start: 20110901
  10. VINCRISTINE SULFATE [Suspect]
     Indication: DIFFUSE LARGE B-CELL LYMPHOMA
     Dosage: 2 MG, UNK
     Route: 042
     Dates: start: 20110811
  11. VINCRISTINE SULFATE [Suspect]
     Dosage: 2 MG, UNK
     Route: 042
     Dates: start: 20110901
  12. DOXORUBICIN HCL [Suspect]
     Indication: DIFFUSE LARGE B-CELL LYMPHOMA
     Dosage: 125 MG, UNK
     Route: 042
     Dates: start: 20110811
  13. CIPROFLOXACIN [Concomitant]
     Indication: PROPHYLAXIS
     Dosage: 1000 MG, UNK
     Route: 048
     Dates: start: 20110818
  14. NEUPOGEN [Suspect]
     Indication: DIFFUSE LARGE B-CELL LYMPHOMA
     Dosage: 6 MG, UNK
     Route: 058
     Dates: start: 20110815
  15. AMOXICILLIN AND CLAVULANATE POTASSIUM [Concomitant]
     Dosage: 500 MG, UNK
     Route: 048
     Dates: start: 20110818

REACTIONS (2)
  - PNEUMONIA [None]
  - ERYSIPELAS [None]
